FAERS Safety Report 19280007 (Version 2)
Quarter: 2021Q2

REPORT INFORMATION
  Report Type: Spontaneous
  Country: JP (occurrence: JP)
  Receive Date: 20210520
  Receipt Date: 20210522
  Transmission Date: 20210717
  Serious: Yes (Other)
  Sender: FDA-Public Use
  Company Number: JP-UNITED THERAPEUTICS-UNT-2019-018881

PATIENT
  Age: 9 Month
  Sex: Male
  Weight: 7 kg

DRUGS (43)
  1. PIMOBENDAN [Concomitant]
     Active Substance: PIMOBENDAN
     Indication: VASCULAR MALFORMATION
  2. OPSUMIT [Concomitant]
     Active Substance: MACITENTAN
     Indication: PULMONARY ARTERIAL HYPERTENSION
     Dosage: 1.5 MG, QD (PER DAY)
     Route: 048
     Dates: start: 201812
  3. INOFLO [Concomitant]
     Active Substance: NITRIC OXIDE
     Indication: ALVEOLAR CAPILLARY DYSPLASIA
  4. SOLDEM 3A [Concomitant]
     Active Substance: CARBOHYDRATES\POTASSIUM CHLORIDE\SODIUM CHLORIDE\SODIUM LACTATE
     Indication: PRODUCT USED FOR UNKNOWN INDICATION
     Dosage: UNKN (MAINTENANCE INFUSION)
     Route: 065
  5. MIDAZOLAM. [Concomitant]
     Active Substance: MIDAZOLAM
     Indication: VASCULAR MALFORMATION
  6. ZINC. [Concomitant]
     Active Substance: ZINC
     Indication: PRODUCT USED FOR UNKNOWN INDICATION
     Dosage: UNK
     Route: 048
     Dates: end: 20190317
  7. ATARAX?P [Concomitant]
     Active Substance: HYDROXYZINE HYDROCHLORIDE
     Indication: PRODUCT USED FOR UNKNOWN INDICATION
     Dosage: UNK
     Route: 048
     Dates: end: 20190317
  8. SULBACILLIN [Concomitant]
     Active Substance: AMPICILLIN SODIUM\SULBACTAM SODIUM
     Indication: ANTIBIOTIC PROPHYLAXIS
     Dosage: UNK
     Route: 065
     Dates: start: 20190318, end: 20190320
  9. REMODULIN [Suspect]
     Active Substance: TREPROSTINIL
     Indication: PULMONARY ARTERIAL HYPERTENSION
     Dosage: UNK, CONTINUING
     Route: 058
     Dates: start: 20191119
  10. REMODULIN [Suspect]
     Active Substance: TREPROSTINIL
     Indication: VASCULAR MALFORMATION
  11. OPSUMIT [Concomitant]
     Active Substance: MACITENTAN
     Indication: ALVEOLAR CAPILLARY DYSPLASIA
  12. MIDAZOLAM. [Concomitant]
     Active Substance: MIDAZOLAM
     Indication: ALVEOLAR CAPILLARY DYSPLASIA
  13. PIMOBENDAN [Concomitant]
     Active Substance: PIMOBENDAN
     Indication: ALVEOLAR CAPILLARY DYSPLASIA
  14. ADCIRCA [Concomitant]
     Active Substance: TADALAFIL
     Indication: ALVEOLAR CAPILLARY DYSPLASIA
  15. FENTANYL. [Concomitant]
     Active Substance: FENTANYL
     Indication: VASCULAR MALFORMATION
  16. MIDAZOLAM. [Concomitant]
     Active Substance: MIDAZOLAM
     Indication: PULMONARY ARTERIAL HYPERTENSION
     Dosage: UNK
     Route: 065
     Dates: end: 20190406
  17. INCREMIN [Concomitant]
     Indication: PRODUCT USED FOR UNKNOWN INDICATION
     Dosage: UNK
     Route: 048
  18. DOBUTREX [Concomitant]
     Active Substance: DOBUTAMINE HYDROCHLORIDE
     Indication: TRACHEOSTOMY
     Dosage: UNK
     Route: 065
     Dates: start: 20190318, end: 20190319
  19. SOLACET D [Concomitant]
     Indication: PRODUCT USED FOR UNKNOWN INDICATION
     Dosage: UNK UNK, CONTINUING
     Route: 041
     Dates: start: 20190318
  20. PIMOBENDAN [Concomitant]
     Active Substance: PIMOBENDAN
     Indication: PULMONARY ARTERIAL HYPERTENSION
     Dosage: 0.8 MG, QD (PER DAY)
     Route: 048
     Dates: start: 201902
  21. VECURONIUM [Concomitant]
     Active Substance: VECURONIUM BROMIDE
     Indication: TRACHEOSTOMY
     Dosage: UNK
     Route: 065
     Dates: start: 20190318, end: 20190325
  22. ADCIRCA [Concomitant]
     Active Substance: TADALAFIL
     Indication: VASCULAR MALFORMATION
  23. INOFLO [Concomitant]
     Active Substance: NITRIC OXIDE
     Indication: VASCULAR MALFORMATION
  24. XYZAL [Concomitant]
     Active Substance: LEVOCETIRIZINE DIHYDROCHLORIDE
     Indication: PRODUCT USED FOR UNKNOWN INDICATION
     Dosage: UNK
     Route: 048
  25. INOVAN [Concomitant]
     Active Substance: DOPAMINE HYDROCHLORIDE
     Indication: TRACHEOSTOMY
     Dosage: UNK
     Route: 065
     Dates: start: 20190318, end: 20190319
  26. REMODULIN [Suspect]
     Active Substance: TREPROSTINIL
     Indication: PULMONARY ARTERIAL HYPERTENSION
     Dosage: UNK, CONTINUING (TARGET DOSE 110?120 NG/KG/MIN)
     Route: 041
     Dates: start: 20190221
  27. REMODULIN [Suspect]
     Active Substance: TREPROSTINIL
     Indication: VASCULAR MALFORMATION
     Dosage: 0.147 ?G/KG , CONTINUING
     Route: 041
     Dates: start: 2019
  28. REMODULIN [Suspect]
     Active Substance: TREPROSTINIL
     Dosage: 0.158 ?G/KG , CONTINUING
     Route: 041
     Dates: start: 2019, end: 20191123
  29. REMODULIN [Suspect]
     Active Substance: TREPROSTINIL
     Indication: ALVEOLAR CAPILLARY DYSPLASIA
     Dosage: 0.0972 ?G/KG, CONTINUING
     Route: 058
     Dates: start: 20191122
  30. ADCIRCA [Concomitant]
     Active Substance: TADALAFIL
     Indication: PULMONARY ARTERIAL HYPERTENSION
     Dosage: 15 MG, QD (PER DAY)
     Route: 048
     Dates: start: 201809
  31. OPSUMIT [Concomitant]
     Active Substance: MACITENTAN
     Indication: VASCULAR MALFORMATION
  32. PREDNISOLONE. [Concomitant]
     Active Substance: PREDNISOLONE
     Indication: PULMONARY ARTERIAL HYPERTENSION
     Dosage: UNK
     Route: 048
  33. PREDNISOLONE. [Concomitant]
     Active Substance: PREDNISOLONE
     Indication: ALVEOLAR CAPILLARY DYSPLASIA
  34. FAMOTIDINE. [Concomitant]
     Active Substance: FAMOTIDINE
     Indication: STEROID THERAPY
     Dosage: UNK
     Route: 048
  35. PRECEDEX [Concomitant]
     Active Substance: DEXMEDETOMIDINE HYDROCHLORIDE
     Indication: TRACHEOSTOMY
     Dosage: UNK
     Route: 065
     Dates: start: 20190325, end: 20190407
  36. REMODULIN [Suspect]
     Active Substance: TREPROSTINIL
     Indication: ALVEOLAR CAPILLARY DYSPLASIA
     Dosage: 0.146 ?G/KG , CONTINUING
     Route: 041
     Dates: start: 2019
  37. INOFLO [Concomitant]
     Active Substance: NITRIC OXIDE
     Indication: PULMONARY ARTERIAL HYPERTENSION
     Dosage: UNK
     Route: 065
     Dates: start: 201811
  38. ISOTONIC SODIUM CHLORIDE SOLUTION [Concomitant]
     Active Substance: SODIUM CHLORIDE
     Indication: PRODUCT USED FOR UNKNOWN INDICATION
     Dosage: UNK , CONTINUING
     Route: 041
  39. FENTANYL. [Concomitant]
     Active Substance: FENTANYL
     Indication: PULMONARY ARTERIAL HYPERTENSION
     Dosage: UNK
     Route: 065
     Dates: end: 20190404
  40. FENTANYL. [Concomitant]
     Active Substance: FENTANYL
     Indication: ALVEOLAR CAPILLARY DYSPLASIA
  41. BIO?THREE [Concomitant]
     Active Substance: HERBALS
     Indication: GASTROINTESTINAL DISORDER
     Dosage: UNK
     Route: 048
  42. PREDNISOLONE. [Concomitant]
     Active Substance: PREDNISOLONE
     Indication: VASCULAR MALFORMATION
  43. TRICLORYL [Concomitant]
     Active Substance: TRICLOFOS SODIUM
     Indication: SLEEP DISORDER
     Dosage: UNK
     Route: 048

REACTIONS (16)
  - Injection site pain [Unknown]
  - Injection site reaction [Unknown]
  - Respiratory tract infection [Recovered/Resolved]
  - Peripheral venous disease [Unknown]
  - Vascular device infection [Recovered/Resolved]
  - Injection site erythema [Unknown]
  - Injection site discharge [Unknown]
  - Injection site swelling [Unknown]
  - Injection site pruritus [Unknown]
  - Vascular device infection [Recovered/Resolved]
  - Device breakage [Unknown]
  - Injection site infection [Unknown]
  - Unintentional medical device removal [Unknown]
  - Injection site pruritus [Unknown]
  - Injection site inflammation [Unknown]
  - Injection site induration [Unknown]

NARRATIVE: CASE EVENT DATE: 2019
